FAERS Safety Report 25443529 (Version 4)
Quarter: 2025Q4

REPORT INFORMATION
  Report Type: Report from Study
  Country: IN (occurrence: IN)
  Receive Date: 20250617
  Receipt Date: 20251013
  Transmission Date: 20260117
  Serious: Yes (Other)
  Sender: ROCHE
  Company Number: IN-ROCHE-10000313345

PATIENT
  Age: 64 Year
  Sex: Female

DRUGS (5)
  1. PHESGO [Suspect]
     Active Substance: HYALURONIDASE-ZZXF\PERTUZUMAB\TRASTUZUMAB
     Indication: Breast cancer metastatic
     Dosage: 13TH INFUSION WAS TAKEN ON 10-APR-2025, FOURTEEN INFUSION WAS TAKEN ON 02-MAY-2025 AND 14TH INFUSION
     Route: 058
     Dates: start: 20240727
  2. LEVOTHYROXINE [Concomitant]
     Active Substance: LEVOTHYROXINE
  3. TENEGLIPTIN [Concomitant]
  4. ULTRACET [Concomitant]
     Active Substance: ACETAMINOPHEN\TRAMADOL HYDROCHLORIDE
  5. TORSEMIDE [Concomitant]
     Active Substance: TORSEMIDE

REACTIONS (2)
  - Off label use [Unknown]
  - Breast mass [Unknown]

NARRATIVE: CASE EVENT DATE: 20250502
